FAERS Safety Report 9695041 (Version 1)
Quarter: 2013Q4

REPORT INFORMATION
  Report Type: Spontaneous
  Country: BR (occurrence: BR)
  Receive Date: 20131119
  Receipt Date: 20131119
  Transmission Date: 20140711
  Serious: Yes (Hospitalization)
  Sender: FDA-Public Use
  Company Number: PHHY2013BR130567

PATIENT
  Age: 65 Year
  Sex: Female
  Weight: 53 kg

DRUGS (3)
  1. ZOMETA [Suspect]
     Indication: BREAST CANCER FEMALE
     Dosage: UNK UKN, UNK
     Dates: start: 20130812
  2. AFINITOR [Suspect]
     Indication: BREAST CANCER FEMALE
     Dosage: UNK UKN, UNK
     Dates: start: 201307
  3. AROMASIN [Suspect]
     Indication: BREAST CANCER FEMALE
     Dosage: UNK UKN, UNK
     Dates: start: 201307

REACTIONS (1)
  - Febrile neutropenia [Recovered/Resolved]
